FAERS Safety Report 5808179-1 (Version None)
Quarter: 2008Q3

REPORT INFORMATION
  Report Type: 
  Country: None (occurrence: None)
  Receive Date: 20080709
  Receipt Date: 20080630
  Transmission Date: 20090109
  Serious: Yes (Death, Hospitalization)
  Sender: FDA-Public Use
  Company Number: 163-21880-08061665

PATIENT
  Age: 52 Year
  Sex: Male
  Weight: 71 kg

DRUGS (7)
  1. REVLIMID [Suspect]
     Indication: MANTLE CELL LYMPHOMA
     Dosage: 20 MG, QD ON DAYS 1-14, ORAL
     Route: 048
     Dates: start: 20080609, end: 20080617
  2. BORTEZOMIB (BORTEZOMIB) [Suspect]
     Indication: MANTLE CELL LYMPHOMA
     Dosage: 1.3MG/M2 OVER 3-5 SEC, DAY 1, 4, 8 AND 11, INTRAVENOUS
     Route: 042
     Dates: start: 20080609, end: 20080616
  3. COUMADIN [Concomitant]
  4. ALBUTEROL [Concomitant]
  5. HYDROCODONE (HYDROCODONE) [Concomitant]
  6. SENNA (SENNA) [Concomitant]
  7. HEPARIN [Concomitant]

REACTIONS (17)
  - APNOEA [None]
  - ATELECTASIS [None]
  - BACTERIAL SEPSIS [None]
  - HAEMOGLOBIN DECREASED [None]
  - HYDRONEPHROSIS [None]
  - HYPOTENSION [None]
  - HYPOXIA [None]
  - LYMPHADENOPATHY [None]
  - NEPHROLITHIASIS [None]
  - PLATELET COUNT DECREASED [None]
  - PLEURAL EFFUSION [None]
  - RENAL FAILURE ACUTE [None]
  - RESPIRATORY FAILURE [None]
  - SEPTIC SHOCK [None]
  - URETHRAL STENOSIS [None]
  - UROSEPSIS [None]
  - WHITE BLOOD CELL COUNT DECREASED [None]
